FAERS Safety Report 8446920-2 (Version None)
Quarter: 2012Q2

REPORT INFORMATION
  Report Type: 
  Country: None (occurrence: None)
  Receive Date: 20120613
  Receipt Date: 20120613
  Transmission Date: 20120825
  Serious: Yes (Death, Life-Threatening, Hospitalization, Other)
  Sender: FDA-Public Use
  Company Number: None

PATIENT
  Age: 24 Year
  Sex: Male
  Weight: 54.4316 kg

DRUGS (1)
  1. AZATHIOPRINE [Suspect]
     Indication: COLITIS ULCERATIVE
     Dosage: 25 MG, ONCE DAILY, PO
     Route: 048
     Dates: start: 20030101, end: 20090301

REACTIONS (3)
  - PLATELET COUNT DECREASED [None]
  - STEM CELL TRANSPLANT [None]
  - RED BLOOD CELL COUNT DECREASED [None]
